FAERS Safety Report 8604810-6 (Version None)
Quarter: 2012Q3

REPORT INFORMATION
  Report Type: 
  Country: None (occurrence: None)
  Receive Date: 20120820
  Receipt Date: 20120810
  Transmission Date: 20120928
  Serious: Yes (Other)
  Sender: FDA-Public Use
  Company Number: IT-JNJFOC-20120807036

PATIENT
  Age: 28 Year
  Sex: Female

DRUGS (2)
  1. REMICADE [Suspect]
     Dosage: 100 MG (STRENGTH) INJECTION FORM
     Route: 042
     Dates: start: 20111027
  2. REMICADE [Suspect]
     Indication: CROHN'S DISEASE
     Dosage: 100 MG (STRENGTH) INJECTION FORM
     Route: 042
     Dates: start: 20120802, end: 20120802

REACTIONS (4)
  - INFUSION RELATED REACTION [None]
  - DYSPNOEA [None]
  - VOMITING [None]
  - ERYTHEMA [None]
